FAERS Safety Report 6156983-5 (Version None)
Quarter: 2009Q2

REPORT INFORMATION
  Report Type: 
  Country: None (occurrence: None)
  Receive Date: 20090416
  Receipt Date: 20090406
  Transmission Date: 20091009
  Serious: Yes (Life-Threatening, Hospitalization)
  Sender: FDA-Public Use
  Company Number: PL-AMGEN-UK295572

PATIENT
  Sex: Female

DRUGS (6)
  1. PANITUMUMAB [Suspect]
     Indication: COLORECTAL CANCER
     Route: 042
     Dates: start: 20071115, end: 20080519
  2. ETAMSYLATE [Suspect]
     Route: 065
     Dates: start: 20080520, end: 20080526
  3. TRANEXAMIC ACID [Suspect]
     Route: 065
     Dates: start: 20080520, end: 20080524
  4. CIMETIDINE HCL [Suspect]
     Route: 065
     Dates: start: 20080520, end: 20080526
  5. PREDNISONE TAB [Suspect]
     Route: 065
     Dates: start: 20080520, end: 20080526
  6. FLUOROURACIL [Concomitant]
     Route: 042
     Dates: start: 20080519, end: 20080520

REACTIONS (2)
  - EPISTAXIS [None]
  - THROMBOCYTOPENIA [None]
